FAERS Safety Report 9012996 (Version 2)
Quarter: 2013Q2

REPORT INFORMATION
  Report Type: Spontaneous
  Country: FR (occurrence: FR)
  Receive Date: 20130114
  Receipt Date: 20130531
  Transmission Date: 20140414
  Serious: Yes (Death, Other)
  Sender: FDA-Public Use
  Company Number: FR-MPIJNJ-2013-00314

PATIENT
  Sex: 0

DRUGS (1)
  1. VELCADE [Suspect]
     Indication: B-CELL LYMPHOMA
     Dosage: 1.6 MG/M2, CYCLIC
     Route: 042

REACTIONS (3)
  - Histiocytosis haematophagic [Fatal]
  - Cytomegalovirus infection [Fatal]
  - Cerebral haemorrhage [Fatal]
